FAERS Safety Report 5390224-1 (Version None)
Quarter: 2007Q3

REPORT INFORMATION
  Report Type: 
  Country: None (occurrence: None)
  Receive Date: 20070718
  Receipt Date: 20070707
  Transmission Date: 20080115
  Serious: Yes (Other)
  Sender: FDA-Public Use
  Company Number: SE-ROCHE-504662

PATIENT
  Age: 45 Year
  Sex: Female

DRUGS (7)
  1. XELODA [Suspect]
     Indication: DRUG USE FOR UNKNOWN INDICATION
     Dosage: DOSAGE REGIMEN REPORTED AS ^3.6GMC GM C^.
     Route: 048
     Dates: start: 20060911, end: 20070314
  2. HERCEPTIN [Suspect]
     Indication: DRUG USE FOR UNKNOWN INDICATION
     Dosage: DOSAGE REGIMEN REPORTED AS ^420MGN MG N^.
     Route: 042
     Dates: start: 20060627
  3. ZOMETA [Suspect]
     Indication: DRUG USE FOR UNKNOWN INDICATION
     Dosage: FORMULATION REPORTED AS ^CONCENTRATE FOR SOLUTION FOR INFUSION^. STRENGTH REPORTED AS ^4 MG/5 ML^. +
     Route: 042
     Dates: start: 20060421, end: 20070403
  4. TAXOTERE [Suspect]
     Indication: DRUG USE FOR UNKNOWN INDICATION
     Dosage: FORMULATION REPORTED AS ^CONCENTRATE AND SOLVENT FOR SOLUTION FOR INFUSION^. DOSAGE REGIMEN REPORTE+
     Route: 042
     Dates: start: 20060421, end: 20060628
  5. ALVEDON [Concomitant]
  6. BETAPRED [Concomitant]
  7. 1 CONCOMITANT DRUG [Concomitant]
     Dosage: DRUG NOT SHOWN.

REACTIONS (1)
  - OSTEONECROSIS [None]
